FAERS Safety Report 9912877 (Version 2)
Quarter: 2014Q2

REPORT INFORMATION
  Report Type: Spontaneous
  Country: JP (occurrence: JP)
  Receive Date: 20140220
  Receipt Date: 20140501
  Transmission Date: 20141212
  Serious: Yes (Death)
  Sender: FDA-Public Use
  Company Number: JP-SA-2014SA019685

PATIENT
  Age: 60 Year
  Sex: Male
  Weight: 65 kg

DRUGS (3)
  1. FABRAZYME [Suspect]
     Indication: FABRY^S DISEASE
     Route: 042
     Dates: start: 20100716, end: 20140124
  2. PREDONINE [Concomitant]
     Indication: PROPHYLAXIS
     Route: 048
     Dates: start: 20100716, end: 20140124
  3. ATARAX-P [Concomitant]
     Indication: PROPHYLAXIS
     Route: 048
     Dates: start: 20100716, end: 20140124

REACTIONS (1)
  - Near drowning [Fatal]
